FAERS Safety Report 16146799 (Version 6)
Quarter: 2019Q4

REPORT INFORMATION
  Report Type: Report from Study
  Country: US (occurrence: US)
  Receive Date: 20190402
  Receipt Date: 20191219
  Transmission Date: 20200122
  Serious: Yes (Hospitalization, Other)
  Sender: FDA-Public Use
  Company Number: US-TESARO-2018-TSO2557-US

PATIENT
  Age: 62 Year
  Sex: Female
  Weight: 81 kg

DRUGS (12)
  1. DOXIL [Concomitant]
     Active Substance: DOXORUBICIN HYDROCHLORIDE
     Indication: LEIOMYOSARCOMA METASTATIC
     Dosage: INFUSIONS EVERY 3 WEEKS
  2. VITAMIN C [Concomitant]
     Active Substance: ASCORBIC ACID
     Indication: PRODUCT USED FOR UNKNOWN INDICATION
     Dosage: UNK
  3. NIRAPARIB [Suspect]
     Active Substance: NIRAPARIB
     Indication: SOFT TISSUE SARCOMA
     Dosage: 200 MG, QD,PM WITHOUT FOOD
     Dates: start: 20181119, end: 20190325
  4. NIRAPARIB [Suspect]
     Active Substance: NIRAPARIB
     Dosage: 200 MG DAILY
     Dates: end: 20191022
  5. KEYTRUDA [Concomitant]
     Active Substance: PEMBROLIZUMAB
     Indication: PRODUCT USED FOR UNKNOWN INDICATION
     Dosage: INFUSIONS EVERY 3 WEEKS
  6. PERCOCET [Concomitant]
     Active Substance: ACETAMINOPHEN\OXYCODONE HYDROCHLORIDE
     Indication: PAIN
     Dosage: UNK
  7. VOTRIENT [Concomitant]
     Active Substance: PAZOPANIB HYDROCHLORIDE
     Indication: LEIOMYOSARCOMA METASTATIC
     Dosage: UNK
     Route: 048
  8. NIRAPARIB [Suspect]
     Active Substance: NIRAPARIB
     Indication: LEIOMYOSARCOMA METASTATIC
     Dosage: 200 MG, QD
  9. NIRAPARIB [Suspect]
     Active Substance: NIRAPARIB
     Dosage: 100 MG, AM AFTER BREAKFAST
     Dates: end: 20190328
  10. NIRAPARIB [Suspect]
     Active Substance: NIRAPARIB
     Dosage: 100 MG, QD
     Route: 048
     Dates: start: 2019
  11. NIRAPARIB [Suspect]
     Active Substance: NIRAPARIB
     Dosage: 200 MG, Q PM W/FOOD
     Route: 048
     Dates: start: 201908
  12. PROZAC [Concomitant]
     Active Substance: FLUOXETINE HYDROCHLORIDE
     Indication: STRESS
     Dosage: UNK

REACTIONS (17)
  - Malaise [Recovered/Resolved]
  - Nasopharyngitis [Unknown]
  - Sinus congestion [Not Recovered/Not Resolved]
  - Stress [Not Recovered/Not Resolved]
  - Pneumonitis [Unknown]
  - Product use in unapproved indication [Unknown]
  - Dyspnoea [Unknown]
  - Drug titration error [Unknown]
  - Haemoglobin decreased [Unknown]
  - Pneumonia [Recovered/Resolved]
  - Fatigue [Not Recovered/Not Resolved]
  - Pain [Not Recovered/Not Resolved]
  - Abdominal discomfort [Not Recovered/Not Resolved]
  - Hospitalisation [Unknown]
  - Weight decreased [Not Recovered/Not Resolved]
  - Asthenia [Unknown]
  - Nausea [Unknown]

NARRATIVE: CASE EVENT DATE: 201901
